FAERS Safety Report 8400198-4 (Version None)
Quarter: 2012Q2

REPORT INFORMATION
  Report Type: 
  Country: None (occurrence: None)
  Receive Date: 20120525
  Receipt Date: 20120514
  Transmission Date: 20120825
  Serious: Yes (Other)
  Sender: FDA-Public Use
  Company Number: 2012P1018654

PATIENT
  Sex: Female
  Weight: 54.4316 kg

DRUGS (1)
  1. FENTANYL [Suspect]
     Indication: NEUROPATHY PERIPHERAL
     Dosage: ;Q72H;
     Dates: start: 20120401

REACTIONS (3)
  - ANGINA PECTORIS [None]
  - DIZZINESS [None]
  - WITHDRAWAL SYNDROME [None]
